FAERS Safety Report 15140930 (Version 3)
Quarter: 2018Q3

REPORT INFORMATION
  Report Type: Report from Study
  Country: US (occurrence: US)
  Receive Date: 20180713
  Receipt Date: 20180808
  Transmission Date: 20181010
  Serious: Yes (Hospitalization, Other)
  Sender: FDA-Public Use
  Company Number: US-B.I. PHARMACEUTICALS,INC./RIDGEFIELD-2018-BI-035683

PATIENT
  Age: 82 Year
  Sex: Female
  Weight: 76.4 kg

DRUGS (4)
  1. BIBW 2992 [Suspect]
     Active Substance: AFATINIB
     Indication: NON-SMALL CELL LUNG CANCER
     Route: 048
     Dates: start: 20151204
  2. PREDNISONE. [Suspect]
     Active Substance: PREDNISONE
     Indication: TEMPORAL ARTERITIS
     Route: 065
  3. BIBW 2992 [Suspect]
     Active Substance: AFATINIB
     Route: 065
     Dates: start: 20161216
  4. BIBW 2992 [Suspect]
     Active Substance: AFATINIB
     Route: 065
     Dates: start: 20171117, end: 20171212

REACTIONS (3)
  - Pulmonary embolism [Recovered/Resolved]
  - Cellulitis [Recovered/Resolved]
  - Sepsis [Recovered/Resolved]

NARRATIVE: CASE EVENT DATE: 20171213
